FAERS Safety Report 16651809 (Version 1)
Quarter: 2019Q3

REPORT INFORMATION
  Report Type: Spontaneous
  Country: US (occurrence: US)
  Receive Date: 20190730
  Receipt Date: 20190730
  Transmission Date: 20191004
  Serious: No
  Sender: FDA-Public Use
  Company Number: None

PATIENT
  Age: 73 Year
  Sex: Female

DRUGS (13)
  1. REVLIMID [Concomitant]
     Active Substance: LENALIDOMIDE
  2. ONDANSETRON. [Concomitant]
     Active Substance: ONDANSETRON
  3. FAMOTIDINE 20MG [Concomitant]
     Active Substance: FAMOTIDINE
  4. DEXAMETHASONE 4MG [Concomitant]
     Active Substance: DEXAMETHASONE
  5. ASPIRIN 81MG [Concomitant]
     Active Substance: ASPIRIN
  6. NINLARO [Suspect]
     Active Substance: IXAZOMIB CITRATE
     Indication: PLASMA CELL MYELOMA
     Dosage: ?          OTHER FREQUENCY:ONCE WEEKLY;?
     Route: 048
     Dates: start: 20190327
  7. LEVETIRACETAM 750MG [Concomitant]
     Active Substance: LEVETIRACETAM
  8. VALACYCLOVIR [Concomitant]
     Active Substance: VALACYCLOVIR HYDROCHLORIDE
  9. VENTOLIN [Concomitant]
     Active Substance: ALBUTEROL SULFATE
  10. MIRTAZAPINE 7.5MG [Concomitant]
     Active Substance: MIRTAZAPINE
  11. ALPRAZOLAM 0.25MG [Concomitant]
     Active Substance: ALPRAZOLAM
  12. LISINOPRIL. [Concomitant]
     Active Substance: LISINOPRIL
  13. IPRATROPIUM/ALBUTEROL 0.5/3MG INH SOLN [Concomitant]

REACTIONS (1)
  - Chills [None]

NARRATIVE: CASE EVENT DATE: 20190725
